FAERS Safety Report 24397434 (Version 1)
Quarter: 2024Q4

REPORT INFORMATION
  Report Type: Spontaneous
  Country: US (occurrence: None)
  Receive Date: 20241003
  Receipt Date: 20241003
  Transmission Date: 20250115
  Serious: Yes (Hospitalization)
  Sender: Public
  Company Number: None

PATIENT
  Age: 78 Year
  Sex: Male

DRUGS (1)
  1. ZOLEDRONIC ACID [Suspect]
     Active Substance: ZOLEDRONIC ACID
     Indication: Osteoporosis
     Dosage: OTHER FREQUENCY : ONCE;?
     Route: 042
     Dates: start: 20240423, end: 20240423

REACTIONS (10)
  - Dizziness [None]
  - Pyrexia [None]
  - Myalgia [None]
  - Vomiting [None]
  - Malaise [None]
  - Asthenia [None]
  - Chills [None]
  - Decreased appetite [None]
  - Nausea [None]
  - Pain [None]

NARRATIVE: CASE EVENT DATE: 20240424
